FAERS Safety Report 5250748-4 (Version None)
Quarter: 2007Q1

REPORT INFORMATION
  Report Type: 
  Country: None (occurrence: None)
  Receive Date: 20070228
  Receipt Date: 20060629
  Transmission Date: 20070707
  Serious: No
  Sender: FDA-Public Use
  Company Number: US-GLAXOSMITHKLINE-A0610934A

PATIENT
  Age: 45 Year

DRUGS (6)
  1. LAMICTAL [Suspect]
     Indication: BIPOLAR DISORDER
     Dosage: 25MG PER DAY
     Route: 048
     Dates: start: 20060414, end: 20060415
  2. PAXIL [Concomitant]
     Indication: DEPRESSION
  3. INSULIN [Concomitant]
  4. IRON [Concomitant]
  5. ALLERGY MEDICATION [Concomitant]
     Indication: MULTIPLE ALLERGIES
  6. ASTHMA MEDICATION [Concomitant]
     Indication: ASTHMA

REACTIONS (9)
  - DYSGEUSIA [None]
  - EAR PAIN [None]
  - LYMPHADENOPATHY [None]
  - ORAL MUCOSAL DISCOLOURATION [None]
  - PHARYNGOLARYNGEAL PAIN [None]
  - RASH [None]
  - SWOLLEN TONGUE [None]
  - TONGUE DISORDER [None]
  - TONGUE EXFOLIATION [None]
